FAERS Safety Report 4931948-7 (Version None)
Quarter: 2006Q1

REPORT INFORMATION
  Report Type: 
  Country: None (occurrence: None)
  Receive Date: 20060303
  Receipt Date: 20060220
  Transmission Date: 20060701
  Serious: Yes (Hospitalization)
  Sender: FDA-Public Use
  Company Number: US-MERCK-0602USA05129

PATIENT
  Sex: Female
  Weight: 135 kg

DRUGS (7)
  1. VIOXX [Suspect]
     Indication: MYALGIA
     Route: 048
     Dates: start: 20020101, end: 20040101
  2. TEMAZEPAM [Concomitant]
     Indication: DEPRESSION
     Route: 065
     Dates: start: 19991204, end: 20040831
  3. CLONAZEPAM [Concomitant]
     Indication: ANXIETY
     Route: 065
     Dates: start: 20000331, end: 20031129
  4. PROTONIX [Concomitant]
     Indication: GASTROOESOPHAGEAL REFLUX DISEASE
     Route: 065
     Dates: start: 20001103, end: 20041120
  5. HYDROXYZINE HYDROCHLORIDE [Concomitant]
     Indication: SLEEP DISORDER
     Route: 065
     Dates: start: 20001014
  6. ZOLPIDEM TARTRATE [Concomitant]
     Indication: ANXIETY
     Route: 065
     Dates: start: 20000101, end: 20040702
  7. RESTORIL [Concomitant]
     Indication: ANXIETY
     Route: 065
     Dates: start: 20000101, end: 20040702

REACTIONS (12)
  - ARTERIOSCLEROSIS [None]
  - BLOOD CHOLESTEROL INCREASED [None]
  - BLOOD TRIGLYCERIDES INCREASED [None]
  - CEREBROVASCULAR ACCIDENT [None]
  - DYSPNOEA [None]
  - GASTRIC DISORDER [None]
  - GASTROINTESTINAL DISORDER [None]
  - HAEMATOCHEZIA [None]
  - MYOCARDIAL INFARCTION [None]
  - PANCREATITIS [None]
  - SLEEP APNOEA SYNDROME [None]
  - TACHYCARDIA [None]
